FAERS Safety Report 8102696-X (Version None)
Quarter: 2012Q1

REPORT INFORMATION
  Report Type: 
  Country: None (occurrence: None)
  Receive Date: 20120201
  Receipt Date: 20120130
  Transmission Date: 20120608
  Serious: No
  Sender: FDA-Public Use
  Company Number: US-BAYER-2012-009699

PATIENT
  Age: 38 Year
  Sex: Female

DRUGS (3)
  1. MIRENA [Suspect]
     Indication: DYSMENORRHOEA
  2. MIRENA [Suspect]
     Indication: CONTRACEPTION
     Dosage: 20 MCG/24HR, CONT
     Route: 015
     Dates: start: 20111223, end: 20120127
  3. MIRENA [Suspect]
     Indication: MENORRHAGIA

REACTIONS (1)
  - PELVIC PAIN [None]
